FAERS Safety Report 9486224 (Version 2)
Quarter: 2013Q3

REPORT INFORMATION
  Report Type: Report from Study
  Country: FR (occurrence: FR)
  Receive Date: 20130829
  Receipt Date: 20130829
  Transmission Date: 20140515
  Serious: Yes (Death)
  Sender: FDA-Public Use
  Company Number: FR-PFIZER INC-2012038239

PATIENT
  Age: 41 Year
  Sex: Male

DRUGS (3)
  1. CRIZOTINIB [Suspect]
     Indication: NON-SMALL CELL LUNG CANCER
     Dosage: 250 MG, 2X/DAY
     Dates: start: 20111104, end: 20120204
  2. CRIZOTINIB [Suspect]
     Dosage: UNK
     Dates: end: 20120307
  3. VALERIANA OFFICINALIS [Concomitant]
     Dosage: UNK
     Dates: end: 20120206

REACTIONS (1)
  - Death [Fatal]
